FAERS Safety Report 10208616 (Version 1)
Quarter: 2014Q2

REPORT INFORMATION
  Report Type: Spontaneous
  Country: US (occurrence: None)
  Receive Date: 20140529
  Receipt Date: 20140529
  Transmission Date: 20141212
  Serious: Yes (Other)
  Sender: FDA-Public Use
  Company Number: None

PATIENT
  Sex: Male

DRUGS (22)
  1. ZYTIGA 250 MG JANSSEN SCIENTIFIC AFFAIRS [Suspect]
     Indication: PROSTATE CANCER
     Route: 048
     Dates: start: 20140407, end: 201405
  2. PREDNISONE [Concomitant]
  3. VENTOLIN HFA [Concomitant]
  4. ALBUTEROL [Concomitant]
  5. LYRICA [Concomitant]
  6. MUCINEX [Concomitant]
  7. MULTEIQ [Concomitant]
  8. SPIRONOLACTONE [Concomitant]
  9. WARFARIN [Concomitant]
  10. SPIRIVA [Concomitant]
  11. VIT. D, FOLIC ACID, VIT. B - COMPLEX [Concomitant]
  12. DUONEB [Concomitant]
  13. ZANTAC [Concomitant]
  14. BICALVTAMIDE [Concomitant]
  15. HYDROCODONE/APAP [Concomitant]
  16. LOPRESSOR [Concomitant]
  17. SERTALINE HC1 TABLETS/ MFR UNKNOWN [Concomitant]
  18. FUROSEMIDE [Concomitant]
  19. TAZTRAXT [Concomitant]
  20. BROVANA [Concomitant]
  21. SYNTHROID [Concomitant]
  22. AZITHROMYCIN [Concomitant]

REACTIONS (1)
  - Nausea [None]
